FAERS Safety Report 5157165-6 (Version None)
Quarter: 2006Q4

REPORT INFORMATION
  Report Type: 
  Country: None (occurrence: None)
  Receive Date: 20061127
  Receipt Date: 20061013
  Transmission Date: 20070319
  Serious: Yes (Other)
  Sender: FDA-Public Use
  Company Number: FR-ELI_LILLY_AND_COMPANY-FR200610002986

PATIENT
  Age: 58 Year
  Sex: Female

DRUGS (1)
  1. FORTEO [Suspect]
     Indication: OSTEOPOROSIS
     Dosage: 20 UG, DAILY (1/D)
     Route: 058
     Dates: start: 20060624

REACTIONS (5)
  - DYSPEPSIA [None]
  - HEADACHE [None]
  - OESOPHAGEAL CARCINOMA [None]
  - OESOPHAGEAL PAIN [None]
  - OESOPHAGITIS [None]
